FAERS Safety Report 15620200 (Version 1)
Quarter: 2018Q4

REPORT INFORMATION
  Report Type: Spontaneous
  Country: US (occurrence: US)
  Receive Date: 20181115
  Receipt Date: 20181115
  Transmission Date: 20190205
  Serious: No
  Sender: FDA-Public Use
  Company Number: US-ASTRAZENECA-2018SF39568

PATIENT
  Age: 23406 Day
  Sex: Female
  Weight: 64.4 kg

DRUGS (1)
  1. BYDUREON [Suspect]
     Active Substance: EXENATIDE
     Indication: TYPE 2 DIABETES MELLITUS
     Route: 058
     Dates: start: 2018

REACTIONS (3)
  - Incorrect dose administered [Unknown]
  - Injection site extravasation [Unknown]
  - Device malfunction [Unknown]

NARRATIVE: CASE EVENT DATE: 20181018
